FAERS Safety Report 18632215 (Version 1)
Quarter: 2020Q4

REPORT INFORMATION
  Report Type: Spontaneous
  Country: US (occurrence: US)
  Receive Date: 20201217
  Receipt Date: 20201217
  Transmission Date: 20210114
  Serious: No
  Sender: FDA-Public Use
  Company Number: US-ENDO PHARMACEUTICALS INC-2020-005793

PATIENT
  Age: 57 Year
  Sex: Male

DRUGS (1)
  1. XIAFLEX [Suspect]
     Active Substance: COLLAGENASE CLOSTRIDIUM HISTOLYTICUM
     Indication: PEYRONIE^S DISEASE
     Dosage: UNK UNKNOWN, TOTAL 4 CYCLES (8 INJECTIONS)
     Route: 065

REACTIONS (3)
  - Penile swelling [Unknown]
  - Penile contusion [Recovered/Resolved]
  - Drug ineffective [Unknown]
